FAERS Safety Report 15263786 (Version 1)
Quarter: 2018Q3

REPORT INFORMATION
  Report Type: Spontaneous
  Country: ID (occurrence: ID)
  Receive Date: 20180810
  Receipt Date: 20180810
  Transmission Date: 20181010
  Serious: Yes (Other)
  Sender: FDA-Public Use
  Company Number: ID-ASTRAZENECA-2018SF00007

PATIENT
  Age: 77 Year
  Sex: Female

DRUGS (1)
  1. IRESSA [Suspect]
     Active Substance: GEFITINIB
     Indication: LUNG CARCINOMA CELL TYPE UNSPECIFIED STAGE IV
     Route: 048

REACTIONS (5)
  - Skin discolouration [Unknown]
  - Dyspnoea [Unknown]
  - Pleural effusion [Unknown]
  - Nausea [Unknown]
  - Pruritus [Unknown]
